FAERS Safety Report 9061131 (Version 1)
Quarter: 2013Q1

REPORT INFORMATION
  Report Type: Spontaneous
  Country: US (occurrence: US)
  Receive Date: 20130213
  Receipt Date: 20130213
  Transmission Date: 20140127
  Serious: No
  Sender: FDA-Public Use
  Company Number: US-BIOGENIDEC-2013BI011623

PATIENT
  Sex: Male

DRUGS (1)
  1. TYSABRI [Suspect]
     Indication: MULTIPLE SCLEROSIS
     Route: 042
     Dates: start: 20130124

REACTIONS (4)
  - Musculoskeletal disorder [Not Recovered/Not Resolved]
  - Tachyphrenia [Not Recovered/Not Resolved]
  - Poor quality sleep [Unknown]
  - Bronchitis [Unknown]
